FAERS Safety Report 19944986 (Version 1)
Quarter: 2021Q4

REPORT INFORMATION
  Report Type: Spontaneous
  Country: AU (occurrence: AU)
  Receive Date: 20211012
  Receipt Date: 20211012
  Transmission Date: 20220303
  Serious: Yes (Hospitalization, Other)
  Sender: FDA-Public Use
  Company Number: AU-MYLANLABS-2021M1071869

PATIENT
  Age: 80 Year
  Sex: Female

DRUGS (6)
  1. METHOTREXATE [Suspect]
     Active Substance: METHOTREXATE
     Indication: Angiocentric lymphoma
     Dosage: 2 CYCLES OF SMILE CHEMOTHERAPY, WITH 50% REDUCED DOSES OF METHOTREXATE
     Route: 065
  2. DEXAMETHASONE [Suspect]
     Active Substance: DEXAMETHASONE
     Indication: Angiocentric lymphoma
     Dosage: 2 CYCLES OF SMILE CHEMOTHERAPY
     Route: 065
  3. IFOSFAMIDE [Suspect]
     Active Substance: IFOSFAMIDE
     Indication: Angiocentric lymphoma
     Dosage: 2 CYCLES OF SMILE CHEMOTHERAPY, WITH 50% REDUCED DOSES OF IFOSFAMIDE
     Route: 065
  4. ETOPOSIDE [Suspect]
     Active Substance: ETOPOSIDE
     Indication: Angiocentric lymphoma
     Dosage: 2 CYCLES OF SMILE CHEMOTHERAPY, WITH 50% REDUCED DOSES OF ETOPOSIDE
     Route: 065
  5. ASPARAGINASE [Suspect]
     Active Substance: ASPARAGINASE
     Indication: Angiocentric lymphoma
     Dosage: 2 CYCLES OF SMILE CHEMOTHERAPY
     Route: 065
  6. PEMBROLIZUMAB [Concomitant]
     Active Substance: PEMBROLIZUMAB
     Indication: Angiocentric lymphoma
     Dosage: 100 MILLIGRAM,TREATMENT WITH FOUR CYCLES OF 100MG OF INTRAVENOUS PEMBROLIZUMAB AT 3 WEEKLY INTERVALS
     Route: 042

REACTIONS (2)
  - Supraventricular tachycardia [Recovered/Resolved]
  - Hypervolaemia [Unknown]
